FAERS Safety Report 8449902-X (Version None)
Quarter: 2012Q2

REPORT INFORMATION
  Report Type: 
  Country: None (occurrence: None)
  Receive Date: 20120620
  Receipt Date: 20120612
  Transmission Date: 20120825
  Serious: Yes (Hospitalization)
  Sender: FDA-Public Use
  Company Number: PHHY2012FR051731

PATIENT
  Age: 64 Year
  Sex: Male

DRUGS (2)
  1. TEGRETOL [Suspect]
     Dosage: 400 MG, BID
     Route: 048
     Dates: start: 20080101, end: 20120201
  2. PAROXETINE HCL [Suspect]
     Dosage: 20 MG, QD
     Dates: start: 20080101

REACTIONS (6)
  - THROMBOPHLEBITIS [None]
  - HEADACHE [None]
  - PHOTOPHOBIA [None]
  - SUPERIOR SAGITTAL SINUS THROMBOSIS [None]
  - BLOOD TRIGLYCERIDES INCREASED [None]
  - HEMIPARESIS [None]
